FAERS Safety Report 24573165 (Version 2)
Quarter: 2025Q3

REPORT INFORMATION
  Report Type: Report from Study
  Country: US (occurrence: US)
  Receive Date: 20241101
  Receipt Date: 20250803
  Transmission Date: 20251021
  Serious: Yes (Hospitalization, Other)
  Sender: ALEXION PHARMACEUTICALS
  Company Number: US-AstraZeneca-CH-00734002A

PATIENT
  Sex: Male

DRUGS (2)
  1. OLAPARIB [Suspect]
     Active Substance: OLAPARIB
     Indication: Prostate cancer
     Dosage: 200 MILLIGRAM, BID
  2. JARDIANCE [Concomitant]
     Active Substance: EMPAGLIFLOZIN
     Route: 065

REACTIONS (2)
  - Kidney infection [Unknown]
  - Drug ineffective [Unknown]
